FAERS Safety Report 8286423-1 (Version None)
Quarter: 2012Q2

REPORT INFORMATION
  Report Type: 
  Country: None (occurrence: None)
  Receive Date: 20120411
  Receipt Date: 20120411
  Transmission Date: 20120825
  Serious: No
  Sender: FDA-Public Use
  Company Number: None

PATIENT
  Age: 68 Year
  Sex: Female
  Weight: 55.3388 kg

DRUGS (2)
  1. BUPRENORPHINE [Suspect]
     Indication: BACK PAIN
     Dosage: 20MCG/HOUR 1 @ 7 DAYS
     Dates: start: 20120209, end: 20120212
  2. BUPRENORPHINE [Suspect]
     Indication: BACK PAIN
     Dosage: 20MCG/HOUR 1 @ 7 DAYS
     Dates: start: 20120203, end: 20120209

REACTIONS (4)
  - SWELLING [None]
  - PRURITUS [None]
  - RASH [None]
  - BURNING SENSATION [None]
